FAERS Safety Report 5008218-4 (Version None)
Quarter: 2006Q2

REPORT INFORMATION
  Report Type: 
  Country: None (occurrence: None)
  Receive Date: 20060523
  Receipt Date: 20060511
  Transmission Date: 20061013
  Serious: Yes (Other)
  Sender: FDA-Public Use
  Company Number: ES-JNJFOC-20060502930

PATIENT
  Age: 12 Year
  Sex: Female

DRUGS (2)
  1. REMICADE [Suspect]
     Indication: CROHN'S DISEASE
     Dosage: THIRD DOSE
     Route: 042
  2. IMUREL [Concomitant]
     Route: 065

REACTIONS (3)
  - FURUNCLE [None]
  - PSORIASIS [None]
  - STAPHYLOCOCCAL INFECTION [None]
